FAERS Safety Report 9836541 (Version 1)
Quarter: 2014Q1

REPORT INFORMATION
  Report Type: Spontaneous
  Country: US (occurrence: US)
  Receive Date: 20140123
  Receipt Date: 20140123
  Transmission Date: 20141002
  Serious: Yes (Hospitalization)
  Sender: FDA-Public Use
  Company Number: US-ROCHE-1332887

PATIENT
  Sex: Female
  Weight: 112.14 kg

DRUGS (2)
  1. XENICAL [Suspect]
     Indication: WEIGHT DECREASED
     Dosage: 2 CAPSULES A DAY
     Route: 065
  2. ADVIL [Concomitant]
     Route: 065

REACTIONS (2)
  - Cholelithiasis [Unknown]
  - Weight decreased [Unknown]
